FAERS Safety Report 4699769-0 (Version None)
Quarter: 2005Q2

REPORT INFORMATION
  Report Type: 
  Country: None (occurrence: None)
  Receive Date: 20050623
  Receipt Date: 20050608
  Transmission Date: 20051028
  Serious: Yes (Hospitalization, Other)
  Sender: FDA-Public Use
  Company Number: 2005-0008404

PATIENT
  Age: 43 Year
  Sex: Male
  Weight: 91.173 kg

DRUGS (5)
  1. VIREAD [Suspect]
     Indication: HIV INFECTION
     Dosage: 300 MG, 1 IN 1 D, ORAL
     Route: 048
  2. KALETRA [Concomitant]
  3. VIDEX [Concomitant]
  4. EPIVIR [Concomitant]
  5. METOPROLOL [Concomitant]

REACTIONS (8)
  - GLOMERULONEPHRITIS MEMBRANOUS [None]
  - INFLAMMATION [None]
  - PAIN [None]
  - RENAL FAILURE CHRONIC [None]
  - RENAL INTERSTITIAL FIBROSIS [None]
  - RENAL TUBULAR DISORDER [None]
  - THERAPY NON-RESPONDER [None]
  - WEIGHT INCREASED [None]
